FAERS Safety Report 16417998 (Version 1)
Quarter: 2019Q2

REPORT INFORMATION
  Report Type: Spontaneous
  Country: NO (occurrence: NO)
  Receive Date: 20190611
  Receipt Date: 20190611
  Transmission Date: 20190711
  Serious: Yes (Life-Threatening)
  Sender: FDA-Public Use
  Company Number: NO-TEIKOKU PHARMA USA-TPU2019-00473

PATIENT
  Age: 52 Year
  Sex: Female

DRUGS (6)
  1. HEPARIN [Suspect]
     Active Substance: HEPARIN SODIUM
     Indication: PRODUCT USED FOR UNKNOWN INDICATION
     Route: 065
     Dates: start: 20190503, end: 20190503
  2. REMIFENTANIL [Concomitant]
     Active Substance: REMIFENTANIL
     Dates: start: 20190503, end: 20190503
  3. PROPOFOL. [Concomitant]
     Active Substance: PROPOFOL
     Dates: start: 20190503, end: 20190503
  4. LIDOCAINE. [Suspect]
     Active Substance: LIDOCAINE
     Indication: PRODUCT USED FOR UNKNOWN INDICATION
     Route: 058
     Dates: start: 20190503, end: 20190503
  5. OMNIPAQUE [Suspect]
     Active Substance: IOHEXOL
     Indication: X-RAY
     Route: 042
     Dates: start: 20190503, end: 20190503
  6. CISATRACURIUM. [Concomitant]
     Active Substance: CISATRACURIUM

REACTIONS (2)
  - Circulatory collapse [Recovered/Resolved]
  - Anaphylactic reaction [Recovered/Resolved]

NARRATIVE: CASE EVENT DATE: 20190503
